FAERS Safety Report 17850054 (Version 1)
Quarter: 2020Q2

REPORT INFORMATION
  Report Type: Spontaneous
  Country: CA (occurrence: CA)
  Receive Date: 20200602
  Receipt Date: 20200602
  Transmission Date: 20200714
  Serious: Yes (Hospitalization)
  Sender: FDA-Public Use
  Company Number: CA-CELGENEUS-CAN-20200509123

PATIENT
  Sex: Female

DRUGS (1)
  1. REVLIMID [Suspect]
     Active Substance: LENALIDOMIDE
     Indication: PLASMA CELL MYELOMA
     Dosage: 15 MILLIGRAM
     Route: 048
     Dates: start: 20200414, end: 20200414

REACTIONS (5)
  - Unevaluable event [Unknown]
  - Gallbladder disorder [Unknown]
  - Thrombosis [Unknown]
  - Cellulitis [Unknown]
  - Pancreatitis [Unknown]
